FAERS Safety Report 5179049-X (Version None)
Quarter: 2006Q4

REPORT INFORMATION
  Report Type: 
  Country: None (occurrence: None)
  Receive Date: 20061214
  Receipt Date: 20061214
  Transmission Date: 20070319
  Serious: Yes (Other)
  Sender: FDA-Public Use
  Company Number: None

PATIENT
  Age: 37 Year
  Sex: Male
  Weight: 104.3273 kg

DRUGS (1)
  1. ZICAM NOSE SPRAY ZICAM [Suspect]
     Indication: NASOPHARYNGITIS
     Dosage: 1  1X  A DAY FOR 2 DAY  NASAL
     Route: 045
     Dates: start: 20061209, end: 20061210

REACTIONS (8)
  - AGEUSIA [None]
  - ANOSMIA [None]
  - BURNING SENSATION [None]
  - CAUSTIC INJURY [None]
  - EPISTAXIS [None]
  - EYE PAIN [None]
  - HEADACHE [None]
  - NASAL DISCOMFORT [None]
